FAERS Safety Report 11741631 (Version 1)
Quarter: 2015Q4

REPORT INFORMATION
  Report Type: Spontaneous
  Country: CA (occurrence: CA)
  Receive Date: 20151116
  Receipt Date: 20151116
  Transmission Date: 20160304
  Serious: Yes (Other)
  Sender: FDA-Public Use
  Company Number: CA-ROCHE-1659992

PATIENT
  Age: 53 Year
  Sex: Female

DRUGS (1)
  1. RITUXAN [Suspect]
     Active Substance: RITUXIMAB
     Indication: RHEUMATOID ARTHRITIS
     Route: 042
     Dates: start: 20141014, end: 20151028

REACTIONS (6)
  - Progressive multifocal leukoencephalopathy [Unknown]
  - Astigmatism [Not Recovered/Not Resolved]
  - Presbyopia [Not Recovered/Not Resolved]
  - Aphasia [Not Recovered/Not Resolved]
  - Dyslexia [Not Recovered/Not Resolved]
  - Amnesia [Not Recovered/Not Resolved]

NARRATIVE: CASE EVENT DATE: 20151029
